FAERS Safety Report 6510539-0 (Version None)
Quarter: 2009Q4

REPORT INFORMATION
  Report Type: 
  Country: None (occurrence: None)
  Receive Date: 20091222
  Receipt Date: 20091026
  Transmission Date: 20100525
  Serious: No
  Sender: FDA-Public Use
  Company Number: US-ASTRAZENECA-2009SE22556

PATIENT
  Sex: Male
  Weight: 68 kg

DRUGS (5)
  1. CRESTOR [Suspect]
     Indication: BLOOD CHOLESTEROL INCREASED
     Route: 048
     Dates: start: 20090901
  2. AMIODARONE HCL [Concomitant]
  3. BUPROPION HCL [Concomitant]
  4. METOPROLOL TARTRATE [Concomitant]
  5. SYNTHROID [Concomitant]

REACTIONS (1)
  - RENAL DISORDER [None]
